FAERS Safety Report 21338340 (Version 3)
Quarter: 2022Q4

REPORT INFORMATION
  Report Type: Spontaneous
  Country: US (occurrence: US)
  Receive Date: 20220915
  Receipt Date: 20221018
  Transmission Date: 20230113
  Serious: Yes (Other)
  Sender: FDA-Public Use
  Company Number: US-PFIZER INC-202201162605

PATIENT
  Age: 52 Year
  Sex: Female

DRUGS (3)
  1. HEPARIN SODIUM [Suspect]
     Active Substance: HEPARIN SODIUM
     Indication: Cardiac therapeutic procedure
     Dosage: UNK (25,000 UNITS PER 250ML HALF NORMAL SALINE)
     Dates: start: 20220217, end: 20220220
  2. HEPARIN SODIUM [Suspect]
     Active Substance: HEPARIN SODIUM
     Dosage: UNK (25,000 UNITS PER 250ML D5)
     Dates: start: 20220222, end: 20220223
  3. HEPARIN SODIUM [Suspect]
     Active Substance: HEPARIN SODIUM
     Dosage: UNK (25,000 UNITS PER 250ML D5)
     Dates: start: 20220225

REACTIONS (1)
  - Heparin-induced thrombocytopenia [Unknown]
